FAERS Safety Report 12289552 (Version 2)
Quarter: 2016Q2

REPORT INFORMATION
  Report Type: Report from Study
  Country: BR (occurrence: BR)
  Receive Date: 20160421
  Receipt Date: 20160505
  Transmission Date: 20160815
  Serious: No
  Sender: FDA-Public Use
  Company Number: PHHY2015BR117807

PATIENT
  Sex: Male
  Weight: 18.3 kg

DRUGS (2)
  1. HIDROXIUREA [Concomitant]
     Active Substance: HYDROXYUREA
     Indication: SICKLE CELL ANAEMIA
     Dosage: 1 DF, QD
     Route: 048
  2. EXJADE [Suspect]
     Active Substance: DEFERASIROX
     Indication: SICKLE CELL ANAEMIA
     Dosage: 15 MG/KG (1DF OF 250 MG ), QD (IN THE MORNING, WITH ORANGE JUICE)
     Route: 048

REACTIONS (4)
  - Infection [Unknown]
  - Serum ferritin increased [Unknown]
  - Nausea [Unknown]
  - Wrong technique in product usage process [Unknown]
